FAERS Safety Report 6535991-6 (Version None)
Quarter: 2010Q1

REPORT INFORMATION
  Report Type: 
  Country: None (occurrence: None)
  Receive Date: 20100106
  Receipt Date: 20091230
  Transmission Date: 20100710
  Serious: Yes (Death)
  Sender: FDA-Public Use
  Company Number: 2009029733

PATIENT
  Age: 64 Year
  Sex: Male

DRUGS (2)
  1. NUVIGIL [Suspect]
     Indication: SOMNOLENCE
     Dosage: (150 MG), ORAL
     Route: 048
     Dates: start: 20091101
  2. PROVIGIL [Suspect]
     Indication: SOMNOLENCE
     Dosage: ORAL
     Route: 048
     Dates: start: 20040101, end: 20091101

REACTIONS (1)
  - DEATH [None]
